FAERS Safety Report 8339441-9 (Version None)
Quarter: 2012Q2

REPORT INFORMATION
  Report Type: 
  Country: None (occurrence: None)
  Receive Date: 20120507
  Receipt Date: 20120424
  Transmission Date: 20120825
  Serious: Yes (Other)
  Sender: FDA-Public Use
  Company Number: ES-UCBSA-056502

PATIENT
  Sex: Female

DRUGS (2)
  1. VIMPAT [Suspect]
     Dosage: UNKNOWN DOSE
  2. TEGRETOL [Interacting]

REACTIONS (3)
  - CONVULSION [None]
  - ANTICONVULSANT DRUG LEVEL DECREASED [None]
  - DRUG INTERACTION [None]
